FAERS Safety Report 25085870 (Version 1)
Quarter: 2025Q1

REPORT INFORMATION
  Report Type: Spontaneous
  Country: US (occurrence: None)
  Receive Date: 20250315
  Receipt Date: 20250315
  Transmission Date: 20250408
  Serious: No
  Sender: FDA-CTU
  Company Number: None

PATIENT
  Age: 50 Year
  Sex: Male
  Weight: 94.5 kg

DRUGS (5)
  1. METHYLCOBALAMIN\TIRZEPATIDE [Suspect]
     Active Substance: METHYLCOBALAMIN\TIRZEPATIDE
     Dates: start: 20240916, end: 20250303
  2. ADALIMUMAB-RYVK [Suspect]
     Active Substance: ADALIMUMAB-RYVK
  3. CPAP TRAZADONE [Concomitant]
  4. ADALUMINAB-RYOKAN [Concomitant]
  5. LOSARTAN [Concomitant]
     Active Substance: LOSARTAN

REACTIONS (3)
  - Vomiting [None]
  - Allodynia [None]
  - Therapy non-responder [None]

NARRATIVE: CASE EVENT DATE: 20250305
